FAERS Safety Report 4418835-8 (Version None)
Quarter: 2004Q3

REPORT INFORMATION
  Report Type: 
  Country: None (occurrence: None)
  Receive Date: 20040809
  Receipt Date: 20040109
  Transmission Date: 20050211
  Serious: No
  Sender: FDA-Public Use
  Company Number: US-GLAXOSMITHKLINE-A0492253A

PATIENT
  Age: 27 Year
  Sex: Female

DRUGS (1)
  1. PAXIL [Suspect]
     Dosage: 10MG PER DAY
     Route: 048
     Dates: start: 20040106

REACTIONS (5)
  - DEPRESSION [None]
  - FEELING ABNORMAL [None]
  - HYPOAESTHESIA [None]
  - MYDRIASIS [None]
  - PARAESTHESIA [None]
